FAERS Safety Report 4987381-5 (Version None)
Quarter: 2006Q2

REPORT INFORMATION
  Report Type: 
  Country: None (occurrence: None)
  Receive Date: 20060501
  Receipt Date: 20060113
  Transmission Date: 20061013
  Serious: Yes (Other)
  Sender: FDA-Public Use
  Company Number: PHEH2006US00892

PATIENT
  Age: 58 Year
  Sex: Male

DRUGS (13)
  1. COUMADIN [Concomitant]
     Dosage: 5 MG MWS 7.5 ALL OTHER DAYS
  2. DECADRON [Concomitant]
  3. THALIDOMIDE [Concomitant]
  4. FLONASE [Concomitant]
  5. LASIX [Concomitant]
  6. THIOCTIC ACID [Concomitant]
  7. VITAMIN B6 [Concomitant]
  8. VITAMIN E [Concomitant]
  9. NEURONTIN [Concomitant]
  10. PAXIL [Concomitant]
  11. PERIDEX [Concomitant]
  12. CYTOXAN [Concomitant]
  13. ZOMETA [Suspect]
     Indication: MULTIPLE MYELOMA
     Dosage: 4MG EVERY 4 WEEKS
     Dates: start: 20020315, end: 20050329

REACTIONS (14)
  - BONE DEBRIDEMENT [None]
  - EAR PAIN [None]
  - GINGIVITIS [None]
  - HERPES SIMPLEX [None]
  - IMPAIRED HEALING [None]
  - INFLUENZA LIKE ILLNESS [None]
  - LOCAL SWELLING [None]
  - LOCALISED INFECTION [None]
  - ONYCHOMYCOSIS [None]
  - OPEN WOUND [None]
  - OSTEOMYELITIS [None]
  - OSTEONECROSIS [None]
  - PAIN IN JAW [None]
  - TOOTH DISORDER [None]
